FAERS Safety Report 16412942 (Version 4)
Quarter: 2025Q3

REPORT INFORMATION
  Report Type: Spontaneous
  Country: EU (occurrence: EU)
  Receive Date: 20190611
  Receipt Date: 20250721
  Transmission Date: 20251020
  Serious: Yes (Life-Threatening, Hospitalization, Other)
  Sender: AUROBINDO
  Company Number: EU-AUROBINDO-AUR-APL-2019-031554

PATIENT
  Age: 62 Year
  Sex: Male

DRUGS (12)
  1. RAMIPRIL [Suspect]
     Active Substance: RAMIPRIL
     Indication: Hypertension
     Route: 065
  2. RAMIPRIL [Suspect]
     Active Substance: RAMIPRIL
     Route: 065
  3. RAMIPRIL [Suspect]
     Active Substance: RAMIPRIL
     Dosage: 5 MILLIGRAM, ONCE A DAY
     Route: 065
  4. AMLODIPINE [Suspect]
     Active Substance: AMLODIPINE BESYLATE
     Indication: Hypertension
     Route: 065
  5. AMLODIPINE [Suspect]
     Active Substance: AMLODIPINE BESYLATE
     Route: 065
  6. CARVEDILOL [Suspect]
     Active Substance: CARVEDILOL
     Indication: Hypertension
     Route: 065
  7. CARVEDILOL [Suspect]
     Active Substance: CARVEDILOL
     Route: 065
  8. HYDROCHLOROTHIAZIDE [Suspect]
     Active Substance: HYDROCHLOROTHIAZIDE
     Indication: Hypertension
     Route: 065
  9. HYDROCHLOROTHIAZIDE [Suspect]
     Active Substance: HYDROCHLOROTHIAZIDE
     Route: 065
  10. CLONIDINE [Suspect]
     Active Substance: CLONIDINE
     Indication: Hypertension
     Route: 048
  11. CLONIDINE [Suspect]
     Active Substance: CLONIDINE
     Route: 065
  12. CLONIDINE [Suspect]
     Active Substance: CLONIDINE
     Dosage: 0.25 MILLIGRAM, ONCE A DAY
     Route: 048

REACTIONS (9)
  - Condition aggravated [Recovering/Resolving]
  - Renal impairment [Recovering/Resolving]
  - IgA nephropathy [Unknown]
  - Blood pressure inadequately controlled [Recovering/Resolving]
  - Nephrotic syndrome [Recovering/Resolving]
  - Generalised oedema [Unknown]
  - Proteinuria [Recovering/Resolving]
  - Neuropathy peripheral [Unknown]
  - Renal artery stenosis [Unknown]
